FAERS Safety Report 6590919-8 (Version None)
Quarter: 2010Q1

REPORT INFORMATION
  Report Type: 
  Country: None (occurrence: None)
  Receive Date: 20100219
  Receipt Date: 20100209
  Transmission Date: 20100710
  Serious: Yes (Death)
  Sender: FDA-Public Use
  Company Number: TR-ELI_LILLY_AND_COMPANY-TR201002002552

PATIENT
  Age: 69 Year
  Sex: Female

DRUGS (6)
  1. HUMULIN R [Suspect]
     Indication: DIABETES MELLITUS
     Dosage: 20 U, 3/D
     Route: 058
     Dates: start: 20050101
  2. MONOLONG [Concomitant]
     Dosage: 40 MG, DAILY (1/D)
     Route: 048
     Dates: start: 20020101, end: 20100206
  3. ALDACTAZIDE [Concomitant]
     Dosage: UNK UNK, DAILY (1/D)
     Route: 048
     Dates: start: 20020101, end: 20100206
  4. DELIX PLUS [Concomitant]
     Dosage: UNK UNK, DAILY (1/D)
     Route: 048
     Dates: start: 20020101, end: 20100206
  5. ASPIRIN [Concomitant]
     Indication: CARDIAC DISORDER
     Dosage: UNK UNK, DAILY (1/D)
     Route: 048
     Dates: start: 20020101, end: 20100206
  6. LASIX [Concomitant]
     Indication: PLEURAL EFFUSION
     Dosage: UNK UNK, DAILY (1/D)
     Route: 048
     Dates: start: 20020101, end: 20100206

REACTIONS (2)
  - CARDIAC FAILURE [None]
  - RESPIRATORY FAILURE [None]
